FAERS Safety Report 7381004-6 (Version None)
Quarter: 2011Q1

REPORT INFORMATION
  Report Type: 
  Country: None (occurrence: None)
  Receive Date: 20110329
  Receipt Date: 20110322
  Transmission Date: 20110831
  Serious: No
  Sender: FDA-Public Use
  Company Number: US-TEVA-273100USA

PATIENT
  Sex: Female
  Weight: 74.91 kg

DRUGS (2)
  1. ALBUTEROL SULFATE AUTOHALER [Suspect]
     Route: 055
     Dates: start: 20110303
  2. NADOLOL [Concomitant]

REACTIONS (1)
  - NAUSEA [None]
